FAERS Safety Report 7949043-1 (Version None)
Quarter: 2011Q4

REPORT INFORMATION
  Report Type: 
  Country: None (occurrence: None)
  Receive Date: 20111130
  Receipt Date: 20111021
  Transmission Date: 20120403
  Serious: No
  Sender: FDA-Public Use
  Company Number: US-BRISTOL-MYERS SQUIBB COMPANY-16185258

PATIENT
  Age: 49 Year
  Sex: Female

DRUGS (1)
  1. KOMBIGLYZE XR [Suspect]
     Dosage: 1ST DOSE:6MONTHS LAST DS:3DAYS

REACTIONS (2)
  - MALAISE [None]
  - FEELING ABNORMAL [None]
